FAERS Safety Report 6782649-4 (Version None)
Quarter: 2010Q2

REPORT INFORMATION
  Report Type: 
  Country: None (occurrence: None)
  Receive Date: 20100621
  Receipt Date: 20100608
  Transmission Date: 20101027
  Serious: Yes (Other)
  Sender: FDA-Public Use
  Company Number: PHHY2010US37547

PATIENT

DRUGS (1)
  1. AREDIA [Suspect]
     Dosage: UNK

REACTIONS (1)
  - KERATOPATHY [None]
